FAERS Safety Report 18880335 (Version 1)
Quarter: 2021Q1

REPORT INFORMATION
  Report Type: Spontaneous
  Country: IN (occurrence: IN)
  Receive Date: 20210211
  Receipt Date: 20210211
  Transmission Date: 20210420
  Serious: Yes (Other)
  Sender: FDA-Public Use
  Company Number: IN-AMNEAL PHARMACEUTICALS-2021-AMRX-00357

PATIENT
  Age: 65 Year
  Sex: Female

DRUGS (1)
  1. PHENYTOIN SODIUM. [Suspect]
     Active Substance: PHENYTOIN SODIUM
     Indication: SUBDURAL HAEMATOMA
     Dosage: 100 MILLIGRAM, BID
     Route: 065

REACTIONS (1)
  - Erythema multiforme [Recovered/Resolved]
